FAERS Safety Report 7769434-1 (Version None)
Quarter: 2011Q3

REPORT INFORMATION
  Report Type: 
  Country: None (occurrence: None)
  Receive Date: 20110922
  Receipt Date: 20100901
  Transmission Date: 20111222
  Serious: No
  Sender: FDA-Public Use
  Company Number: US-ASTRAZENECA-2010SE41298

PATIENT
  Age: 59 Year
  Sex: Male

DRUGS (7)
  1. SEROQUEL XR [Suspect]
     Route: 048
     Dates: start: 20100819, end: 20100819
  2. PRISTIQ [Concomitant]
  3. SEROQUEL XR [Suspect]
     Route: 048
     Dates: start: 20100818, end: 20100818
  4. CLONAZEPAM [Concomitant]
  5. RESCUE INHALER [Concomitant]
     Dosage: AS NEEDED
  6. SEROQUEL XR [Suspect]
     Indication: DEPRESSION
     Route: 048
     Dates: start: 20100817, end: 20100817
  7. SPIRIVA [Concomitant]

REACTIONS (3)
  - SOMNOLENCE [None]
  - WRONG TECHNIQUE IN DRUG USAGE PROCESS [None]
  - INSOMNIA [None]
